FAERS Safety Report 11727326 (Version 1)
Quarter: 2015Q4

REPORT INFORMATION
  Report Type: Spontaneous
  Country: US (occurrence: US)
  Receive Date: 20151112
  Receipt Date: 20151112
  Transmission Date: 20160304
  Serious: Yes (Other)
  Sender: FDA-Public Use
  Company Number: US-PFIZER INC-2015370558

PATIENT
  Age: 67 Year
  Sex: Female
  Weight: 63 kg

DRUGS (1)
  1. DILANTIN [Suspect]
     Active Substance: PHENYTOIN
     Indication: SEIZURE
     Dosage: 300 MG, AT NIGHT TIME DAILY (FIRST TWO DAYS)
     Dates: start: 201509, end: 201510

REACTIONS (16)
  - Sleep disorder [Unknown]
  - Gait disturbance [Unknown]
  - Crying [Unknown]
  - Pain in jaw [Unknown]
  - Hiccups [Unknown]
  - Eating disorder [Unknown]
  - Dysphonia [Unknown]
  - Pain [Unknown]
  - Arthralgia [Unknown]
  - Headache [Unknown]
  - Generalised tonic-clonic seizure [Unknown]
  - Tremor [Unknown]
  - Vomiting [Unknown]
  - Nausea [Not Recovered/Not Resolved]
  - Depression [Unknown]
  - Speech disorder [Unknown]

NARRATIVE: CASE EVENT DATE: 201509
